FAERS Safety Report 4402639-6 (Version None)
Quarter: 2004Q3

REPORT INFORMATION
  Report Type: 
  Country: None (occurrence: None)
  Receive Date: 20040721
  Receipt Date: 20040719
  Transmission Date: 20050211
  Serious: Yes (Death)
  Sender: FDA-Public Use
  Company Number: PHHO2004ES10103

PATIENT
  Age: 55 Year
  Sex: Female

DRUGS (2)
  1. NEORAL [Suspect]
     Indication: RENAL TRANSPLANT
     Dates: start: 19930703, end: 20020714
  2. STEROIDS NOS [Suspect]
     Indication: RENAL TRANSPLANT

REACTIONS (1)
  - BREAST CANCER [None]
